FAERS Safety Report 16597843 (Version 1)
Quarter: 2019Q3

REPORT INFORMATION
  Report Type: Spontaneous
  Country: US (occurrence: US)
  Receive Date: 20190718
  Receipt Date: 20190718
  Transmission Date: 20191004
  Serious: Yes (Other)
  Sender: FDA-Public Use
  Company Number: None

PATIENT
  Sex: Female

DRUGS (3)
  1. TIVICAY [Suspect]
     Active Substance: DOLUTEGRAVIR SODIUM
  2. TRUVADA [Suspect]
     Active Substance: EMTRICITABINE\TENOFOVIR DISOPROXIL FUMARATE
  3. HEP B ANITBODIES AND VACCINE [Suspect]
     Active Substance: HEPATITIS B VIRUS VACCINE

REACTIONS (2)
  - Dysgeusia [None]
  - Pain in extremity [None]

NARRATIVE: CASE EVENT DATE: 20190506
